FAERS Safety Report 7033360-6 (Version None)
Quarter: 2010Q4

REPORT INFORMATION
  Report Type: 
  Country: None (occurrence: None)
  Receive Date: 20101007
  Receipt Date: 20100927
  Transmission Date: 20110411
  Serious: Yes (Death, Hospitalization)
  Sender: FDA-Public Use
  Company Number: BE-MPIJNJ-2010-04796

PATIENT

DRUGS (16)
  1. VELCADE [Suspect]
     Indication: MULTIPLE MYELOMA
     Dosage: 1.3 MG/M2, CYCLIC
     Dates: start: 20071203, end: 20071213
  2. VELCADE [Suspect]
     Dosage: 1.3 MG/M2, CYCLIC
     Dates: start: 20071227, end: 20071231
  3. VELCADE [Suspect]
     Dosage: 1.3 MG/M2, CYCLIC
     Dates: start: 20080103, end: 20080107
  4. VELCADE [Suspect]
     Dosage: 1.3 MG/M2, CYCLIC
     Dates: start: 20080122, end: 20080201
  5. VELCADE [Suspect]
     Dosage: 1 UNK, UNK
     Dates: start: 20080901, end: 20080911
  6. VELCADE [Suspect]
     Dosage: 1 UNK, UNK
     Dates: start: 20080901, end: 20080911
  7. VELCADE [Suspect]
     Dosage: 1.3 MG/M2, CYCLIC
     Dates: start: 20080929, end: 20081009
  8. VELCADE [Suspect]
     Dosage: 1.3 MG/M2, CYCLIC
     Dates: start: 20090105, end: 20090115
  9. VELCADE [Suspect]
     Dosage: 1 UNK, UNK
     Dates: start: 20090127, end: 20090206
  10. VELCADE [Suspect]
     Dosage: 1.3 MG/M2, CYCLIC
     Dates: start: 20090210, end: 20090220
  11. VELCADE [Suspect]
     Dosage: 1.3 MG/M2, CYCLIC
     Dates: start: 20090618, end: 20090629
  12. VELCADE [Suspect]
     Dosage: 1.3 MG/M2, CYCLIC
     Dates: start: 20090713, end: 20090724
  13. ZOLEDRONIC ACID [Concomitant]
     Indication: MULTIPLE MYELOMA
     Dosage: 4 MG, UNK
     Route: 042
  14. DEXAMETHASONE [Concomitant]
     Indication: MULTIPLE MYELOMA
     Dosage: 20 MG, UNK
     Route: 048
     Dates: start: 20090616, end: 20090712
  15. PREDNISOLONE [Concomitant]
     Indication: MULTIPLE MYELOMA
     Dosage: 20 MG, UNK
     Route: 048
     Dates: start: 20090713, end: 20090724
  16. MELPHALAN HYDROCHLORIDE [Concomitant]
     Indication: MULTIPLE MYELOMA
     Dosage: UNK
     Route: 048
     Dates: start: 20090101, end: 20090724

REACTIONS (2)
  - DISEASE PROGRESSION [None]
  - GENERAL PHYSICAL HEALTH DETERIORATION [None]
